FAERS Safety Report 23533707 (Version 5)
Quarter: 2024Q4

REPORT INFORMATION
  Report Type: Spontaneous
  Country: US (occurrence: US)
  Receive Date: 20240216
  Receipt Date: 20241223
  Transmission Date: 20250115
  Serious: Yes (Other)
  Sender: PFIZER
  Company Number: US-PFIZER INC-PV202400021100

PATIENT
  Age: 66 Year
  Sex: Female
  Weight: 84.37 kg

DRUGS (2)
  1. IBRANCE [Suspect]
     Active Substance: PALBOCICLIB
     Indication: Breast cancer stage IV
     Dosage: 125 MG, CYCLIC (1 TABLET DAILY FOR 3 WEEKS AND 1 WEEK OFF)
     Route: 048
     Dates: end: 2023
  2. IBRANCE [Suspect]
     Active Substance: PALBOCICLIB
     Indication: Metastases to bone
     Dosage: 125 MG, CYCLIC (1 TABLET DAILY FOR 3 WEEKS AND 1 WEEK OFF)
     Route: 048
     Dates: start: 20240220

REACTIONS (9)
  - Mental impairment [Unknown]
  - Insomnia [Unknown]
  - Dizziness [Not Recovered/Not Resolved]
  - Tremor [Not Recovered/Not Resolved]
  - Headache [Not Recovered/Not Resolved]
  - Dysarthria [Unknown]
  - Pharyngitis streptococcal [Recovered/Resolved]
  - Influenza [Unknown]
  - Asthenia [Not Recovered/Not Resolved]

NARRATIVE: CASE EVENT DATE: 20240101
